FAERS Safety Report 9741465 (Version 9)
Quarter: 2014Q2

REPORT INFORMATION
  Report Type: Report from Study
  Country: CA (occurrence: CA)
  Receive Date: 20131209
  Receipt Date: 20140521
  Transmission Date: 20141212
  Serious: Yes (Death, Hospitalization, Other)
  Sender: FDA-Public Use
  Company Number: PHHY2013CA127076

PATIENT
  Age: 61 Year
  Sex: Female

DRUGS (5)
  1. SANDOSTATIN (OCTREOTIDE ACETATE) [Suspect]
     Indication: OVARIAN NEOPLASM
     Dosage: 50 UG, ONCE/SINGLE
     Route: 058
     Dates: start: 20131031, end: 20131031
  2. SANDOSTATIN (OCTREOTIDE ACETATE) [Suspect]
     Indication: OFF LABEL USE
  3. SANDOSTATIN LAR [Suspect]
     Indication: OVARIAN DISORDER
     Dosage: 30 MG, QMO
     Route: 030
     Dates: start: 20131105, end: 20140425
  4. SANDOSTATIN LAR [Suspect]
     Indication: OFF LABEL USE
  5. CHEMOTHERAPEUTICS [Concomitant]
     Dosage: UNK UKN, UNK
     Dates: start: 20140220

REACTIONS (13)
  - Death [Fatal]
  - Pelvic pain [Unknown]
  - Intestinal obstruction [Unknown]
  - Lumbar vertebral fracture [Unknown]
  - Ascites [Unknown]
  - Abdominal pain [Not Recovered/Not Resolved]
  - Dyspnoea [Recovered/Resolved]
  - Respiratory rate increased [Unknown]
  - Back pain [Not Recovered/Not Resolved]
  - Weight decreased [Unknown]
  - Heart rate increased [Unknown]
  - Nausea [Unknown]
  - Fatigue [Unknown]
